FAERS Safety Report 9162647 (Version 1)
Quarter: 2013Q1

REPORT INFORMATION
  Report Type: Report from Study
  Country: CA (occurrence: CA)
  Receive Date: 20130314
  Receipt Date: 20130314
  Transmission Date: 20140127
  Serious: Yes (Other)
  Sender: FDA-Public Use
  Company Number: CA-JNJFOC-20130217112

PATIENT
  Age: 43 Year
  Sex: Female
  Weight: 78.5 kg

DRUGS (7)
  1. REMICADE [Suspect]
     Indication: COLITIS ULCERATIVE
     Route: 042
  2. REMICADE [Suspect]
     Indication: COLITIS ULCERATIVE
     Route: 042
  3. REMICADE [Suspect]
     Indication: COLITIS ULCERATIVE
     Dosage: (392 MG) 1ST INFUSION
     Route: 042
     Dates: start: 201203
  4. REACTINE [Concomitant]
     Route: 065
  5. ZOLOFT [Concomitant]
     Route: 065
  6. ATARAX [Concomitant]
     Route: 065
  7. PATADAY [Concomitant]
     Route: 065

REACTIONS (4)
  - Colitis ulcerative [Unknown]
  - Eczema [Recovering/Resolving]
  - Rash [Recovering/Resolving]
  - Swelling face [Recovering/Resolving]
